FAERS Safety Report 7595004-4 (Version None)
Quarter: 2011Q3

REPORT INFORMATION
  Report Type: 
  Country: None (occurrence: None)
  Receive Date: 20110707
  Receipt Date: 20110627
  Transmission Date: 20111222
  Serious: Yes (Hospitalization)
  Sender: FDA-Public Use
  Company Number: JP-SANOFI-AVENTIS-2010SA077916

PATIENT
  Age: 63 Year
  Sex: Male
  Weight: 65 kg

DRUGS (3)
  1. FLUDARABINE PHOSPHATE [Suspect]
     Route: 048
     Dates: start: 20101208, end: 20101212
  2. LANSOPRAZOLE [Concomitant]
     Route: 065
     Dates: start: 20101203
  3. CYCLOPHOSPHAMIDE [Suspect]
     Route: 048
     Dates: start: 20101208, end: 20101212

REACTIONS (1)
  - HEPATIC FUNCTION ABNORMAL [None]
